FAERS Safety Report 5424988-5 (Version None)
Quarter: 2007Q3

REPORT INFORMATION
  Report Type: 
  Country: None (occurrence: None)
  Receive Date: 20070824
  Receipt Date: 20070820
  Transmission Date: 20080115
  Serious: Yes (Life-Threatening)
  Sender: FDA-Public Use
  Company Number: B0484394A

PATIENT
  Age: 37 Year
  Sex: Female

DRUGS (5)
  1. AMOXICILLIN + CLAVULANATE POTASSIUM [Suspect]
     Indication: PROPHYLAXIS
     Route: 042
     Dates: start: 20070725, end: 20070725
  2. BUPIVACAINE [Concomitant]
     Route: 008
     Dates: start: 20070724, end: 20070725
  3. FENTANYL [Concomitant]
     Route: 008
     Dates: start: 20070725, end: 20070725
  4. SYNTOCINON [Concomitant]
     Route: 042
     Dates: start: 20070724, end: 20070725
  5. SYNTOMETRINE [Concomitant]
     Route: 030
     Dates: start: 20070725, end: 20070725

REACTIONS (5)
  - ANAPHYLACTIC REACTION [None]
  - BLOOD PRESSURE DECREASED [None]
  - LIP SWELLING [None]
  - PRURITUS [None]
  - SWOLLEN TONGUE [None]
